FAERS Safety Report 13959728 (Version 2)
Quarter: 2017Q3

REPORT INFORMATION
  Report Type: Report from Study
  Country: LB (occurrence: LB)
  Receive Date: 20170912
  Receipt Date: 20170928
  Transmission Date: 20171128
  Serious: Yes (Hospitalization, Other)
  Sender: FDA-Public Use
  Company Number: PHHY2017LB132309

PATIENT
  Age: 58 Year
  Sex: Male

DRUGS (1)
  1. GLIVEC [Suspect]
     Active Substance: IMATINIB MESYLATE
     Indication: PRODUCT USED FOR UNKNOWN INDICATION
     Dosage: 400 MG, QD
     Route: 048
     Dates: start: 20071001

REACTIONS (5)
  - Pain [Unknown]
  - Somnolence [Unknown]
  - Subcutaneous abscess [Not Recovered/Not Resolved]
  - Gait disturbance [Unknown]
  - Monoplegia [Unknown]

NARRATIVE: CASE EVENT DATE: 20170906
